FAERS Safety Report 4615787-2 (Version None)
Quarter: 2005Q1

REPORT INFORMATION
  Report Type: 
  Country: None (occurrence: None)
  Receive Date: 20050317
  Receipt Date: 20050215
  Transmission Date: 20050727
  Serious: Yes (Death)
  Sender: FDA-Public Use
  Company Number: 2005S1000572

PATIENT
  Age: 67 Year
  Sex: Male

DRUGS (22)
  1. CLOZAPINE [Suspect]
     Indication: SCHIZOPHRENIA, UNDIFFERENTIATED TYPE
     Dosage: 50 MG; QAM; PO
     Route: 048
     Dates: start: 20041203
  2. CLOZAPINE [Suspect]
     Indication: SCHIZOPHRENIA, UNDIFFERENTIATED TYPE
     Dosage: 100 MG; QAM; PO; 200 MG; HS; PO
     Route: 048
     Dates: start: 20041203
  3. CLOZAPINE [Suspect]
     Indication: SCHIZOPHRENIA, UNDIFFERENTIATED TYPE
     Dosage: 100 MG; QAM; PO; 200 MG; HS; PO
     Route: 048
     Dates: start: 20041203
  4. SENNA FRUIT [Concomitant]
  5. ZOLPIDEM TARTRATE [Concomitant]
  6. TRIAMCINOLONE ACETONIDE [Concomitant]
  7. CETIRIZINE HCL [Concomitant]
  8. HYDROCHLORIDE [Concomitant]
  9. DIPHENHYDRAMINE [Concomitant]
  10. HYDROCORTISONE [Concomitant]
  11. FUROSEMIDE [Concomitant]
  12. PERPHENAZINE [Concomitant]
  13. CLARK'S SOLUTION [Concomitant]
  14. ALUMINUM HYDROXIDE AND MAGNESIUM TRISILICATE [Concomitant]
  15. LAMISIL [Concomitant]
  16. PROTONIX  WYETH-AYERST [Concomitant]
  17. TEQUIN [Concomitant]
  18. ACETAMINOPHEN [Concomitant]
  19. TRAZODONE HCL [Concomitant]
  20. FLOMAX [Concomitant]
  21. DICLOFENAC [Concomitant]
  22. BACLOFEN [Concomitant]

REACTIONS (3)
  - AGRANULOCYTOSIS [None]
  - JAUNDICE CHOLESTATIC [None]
  - WHITE BLOOD CELL COUNT ABNORMAL [None]
